FAERS Safety Report 8737456 (Version 2)
Quarter: 2013Q4

REPORT INFORMATION
  Report Type: Report from Study
  Country: JP (occurrence: JP)
  Receive Date: 20120822
  Receipt Date: 20131105
  Transmission Date: 20140711
  Serious: Yes (Death)
  Sender: FDA-Public Use
  Company Number: JP-MERCK-2012SP019156

PATIENT
  Age: 40 Year
  Sex: Male
  Weight: 60 kg

DRUGS (15)
  1. TEMODAL [Suspect]
     Route: 048
  2. TEMODAL [Suspect]
     Dosage: 200 MG/M2, QD
     Route: 041
     Dates: start: 20110704, end: 20110819
  3. TEMODAL [Suspect]
     Dosage: DOSAGE IS UNCERTAIN DURING A DAY.
     Route: 048
     Dates: start: 20101206, end: 20110428
  4. TEMODAL INFUSION 100MG [Suspect]
     Route: 041
     Dates: start: 20110704, end: 20110708
  5. TEMODAL INFUSION 100MG [Suspect]
     Dosage: 200 MG/M2, ONCE
     Route: 041
     Dates: start: 20110725, end: 20110729
  6. TEMODAL INFUSION 100MG [Suspect]
     Dosage: 200 MG/M2, ONCE
     Route: 041
     Dates: start: 20110815, end: 20110819
  7. MORPHINE HYDROCHLORIDE [Concomitant]
     Route: 041
     Dates: end: 20110907
  8. HORIZON [Concomitant]
     Indication: PROPHYLAXIS
     Route: 041
     Dates: end: 20110907
  9. HORIZON [Concomitant]
     Dosage: DOSAGE IS UNCERTAIN DURING A DAY.
     Route: 041
     Dates: start: 20110624, end: 20110907
  10. KETALAR [Concomitant]
     Dosage: DOSAGE IS UNCERTAIN DURING A DAY.
     Route: 041
     Dates: start: 20110704, end: 20110907
  11. XYLOCAINE [Concomitant]
     Dosage: DOSAGE IS UNCERTAIN DURING A DAY.
     Route: 041
     Dates: start: 20110704, end: 20110907
  12. TIENAM IV [Concomitant]
     Indication: PROPHYLAXIS
     Dosage: DOSAGE IS UNCERTAIN DURING A DAY.
     Route: 041
     Dates: start: 20110707, end: 20110711
  13. VANCOMYCIN [Concomitant]
     Indication: PROPHYLAXIS
     Dosage: DOSAGE IS UNCERTAIN DURING A DAY.
     Route: 041
     Dates: start: 20110708, end: 20110711
  14. DUROTEP [Concomitant]
     Dosage: DOSAGE IS UNCERTAIN DURING A DAY.
     Route: 062
     Dates: start: 20110623, end: 20110708
  15. MORPHINE [Concomitant]
     Dosage: DOSAGE IS UNCERTAIN DURING A DAY.
     Route: 041
     Dates: start: 20110624, end: 20110907

REACTIONS (11)
  - Pulmonary embolism [Fatal]
  - Renal impairment [Fatal]
  - Hyperkalaemia [Not Recovered/Not Resolved]
  - Aspartate aminotransferase increased [Not Recovered/Not Resolved]
  - Alanine aminotransferase increased [Not Recovered/Not Resolved]
  - Gamma-glutamyltransferase increased [Not Recovered/Not Resolved]
  - Blood lactate dehydrogenase increased [Not Recovered/Not Resolved]
  - Hyperbilirubinaemia [Not Recovered/Not Resolved]
  - C-reactive protein increased [Not Recovered/Not Resolved]
  - Hyponatraemia [Recovered/Resolved]
  - Gamma-glutamyltransferase increased [Recovered/Resolved]
